FAERS Safety Report 9634383 (Version 1)
Quarter: 2013Q4

REPORT INFORMATION
  Report Type: Spontaneous
  Country: US (occurrence: US)
  Receive Date: 20131021
  Receipt Date: 20131021
  Transmission Date: 20140711
  Serious: Yes (Other)
  Sender: FDA-Public Use
  Company Number: US-JNJFOC-20131008878

PATIENT
  Sex: Male
  Weight: 81.65 kg

DRUGS (1)
  1. ULTRAM [Suspect]
     Indication: PAIN
     Dosage: 3 TIMES IN A DAY
     Route: 048

REACTIONS (5)
  - Drug dependence [Not Recovered/Not Resolved]
  - Adverse drug reaction [Not Recovered/Not Resolved]
  - Drug dose omission [Not Recovered/Not Resolved]
  - Therapeutic response unexpected [Recovered/Resolved]
  - Inappropriate schedule of drug administration [Not Recovered/Not Resolved]
